FAERS Safety Report 14687667 (Version 1)
Quarter: 2018Q1

REPORT INFORMATION
  Report Type: Spontaneous
  Country: KR (occurrence: KR)
  Receive Date: 20180328
  Receipt Date: 20180328
  Transmission Date: 20180509
  Serious: Yes (Other)
  Sender: FDA-Public Use
  Company Number: KR-009507513-1803KOR008005

PATIENT
  Sex: Female

DRUGS (2)
  1. IMPLANON [Suspect]
     Active Substance: ETONOGESTREL
     Dosage: UNK
  2. IMPLANON [Suspect]
     Active Substance: ETONOGESTREL
     Indication: MENORRHAGIA
     Dosage: UNK
     Route: 059

REACTIONS (4)
  - Product use in unapproved indication [Unknown]
  - Hepatic cancer [Unknown]
  - Device difficult to use [Not Recovered/Not Resolved]
  - Overdose [Unknown]
